FAERS Safety Report 8072177-0 (Version None)
Quarter: 2012Q1

REPORT INFORMATION
  Report Type: 
  Country: None (occurrence: None)
  Receive Date: 20120126
  Receipt Date: 20120118
  Transmission Date: 20120608
  Serious: Yes (Hospitalization)
  Sender: FDA-Public Use
  Company Number: US-US-EMD SERONO, INC.-7107847

PATIENT
  Sex: Female
  Weight: 74 kg

DRUGS (3)
  1. REBIF [Suspect]
     Indication: MULTIPLE SCLEROSIS
     Route: 058
     Dates: start: 20070701
  2. ADDERALL 5 [Concomitant]
     Indication: FATIGUE
     Route: 048
     Dates: start: 20110518
  3. HYDROCODONE BITARTRATE [Concomitant]
     Indication: PAIN
     Route: 048
     Dates: start: 20090205

REACTIONS (2)
  - ESCHERICHIA INFECTION [None]
  - WOUND ABSCESS [None]
